FAERS Safety Report 10650478 (Version 2)
Quarter: 2014Q4

REPORT INFORMATION
  Report Type: Spontaneous
  Country: US (occurrence: US)
  Receive Date: 20141213
  Receipt Date: 20141213
  Transmission Date: 20150529
  Serious: No
  Sender: FDA-Public Use
  Company Number: US-BAUSCH-SYM-2014-23125

PATIENT
  Age: 76 Year
  Sex: Female
  Weight: 49.94 kg

DRUGS (1)
  1. XENAZINE [Suspect]
     Active Substance: TETRABENAZINE
     Indication: OROMANDIBULAR DYSTONIA
     Route: 048
     Dates: start: 2014, end: 2014

REACTIONS (10)
  - Judgement impaired [Unknown]
  - Depression [Unknown]
  - Gait disturbance [Recovering/Resolving]
  - Feeling abnormal [Unknown]
  - Abnormal behaviour [Recovering/Resolving]
  - Decreased appetite [Recovering/Resolving]
  - Thinking abnormal [Recovering/Resolving]
  - Weight decreased [Recovering/Resolving]
  - Balance disorder [Unknown]
  - Intentional product use issue [Unknown]

NARRATIVE: CASE EVENT DATE: 20140701
